FAERS Safety Report 4341890-0 (Version None)
Quarter: 2004Q2

REPORT INFORMATION
  Report Type: 
  Country: None (occurrence: None)
  Receive Date: 20040415
  Receipt Date: 20040331
  Transmission Date: 20050107
  Serious: Yes (Hospitalization)
  Sender: FDA-Public Use
  Company Number: USA040463770

PATIENT
  Age: 14 Year
  Sex: Female
  Weight: 43 kg

DRUGS (1)
  1. PROZAC [Suspect]
     Indication: MAJOR DEPRESSION
     Dosage: 25 MG DAY

REACTIONS (3)
  - DISTURBANCE IN ATTENTION [None]
  - EDUCATIONAL PROBLEM [None]
  - SELF MUTILATION [None]
